FAERS Safety Report 21608853 (Version 1)
Quarter: 2022Q4

REPORT INFORMATION
  Report Type: Spontaneous
  Country: US (occurrence: US)
  Receive Date: 20221117
  Receipt Date: 20221117
  Transmission Date: 20230113
  Serious: Yes (Other)
  Sender: FDA-Public Use
  Company Number: US-COLGATE PALMOLIVE COMPANY-20221102000

PATIENT

DRUGS (1)
  1. COLGATE MAXIMUM CAVITY PROTECTION BUBBLE FRUIT FLAVOR [Suspect]
     Active Substance: SODIUM FLUORIDE
     Dosage: UNKNOWN DOSE

REACTIONS (4)
  - Asthma [Unknown]
  - Hypoaesthesia oral [Unknown]
  - Hypoaesthesia oral [Unknown]
  - Product use complaint [Unknown]
